FAERS Safety Report 7970029-5 (Version None)
Quarter: 2011Q4

REPORT INFORMATION
  Report Type: 
  Country: None (occurrence: None)
  Receive Date: 20111122
  Receipt Date: 20110803
  Transmission Date: 20120403
  Serious: No
  Sender: FDA-Public Use
  Company Number: PHHY2011US47061

PATIENT
  Age: 59 Year
  Sex: Female
  Weight: 74.8 kg

DRUGS (15)
  1. SINGULAIR [Concomitant]
  2. DICYCLOMINE [Concomitant]
  3. OMEPRAZOLE [Concomitant]
  4. BACLOFEN [Concomitant]
  5. CALCIUM CARBONATE [Concomitant]
  6. GILENYA [Suspect]
     Indication: RELAPSING-REMITTING MULTIPLE SCLEROSIS
     Dosage: 0.5 MG, QD, ORAL
     Route: 048
     Dates: start: 20110524, end: 20110614
  7. OXYGEN (OXYGEN) [Concomitant]
  8. AMBIEN [Concomitant]
  9. IBUPROFEN [Concomitant]
  10. ALBUTEROL [Concomitant]
  11. CLARITIN [Concomitant]
  12. CALCIUM WITH VITAMIN D (CALCIUM PHOSPHATE, CALCIUM SODIUM LACTATE, ERG [Concomitant]
  13. PROMETRIUM [Concomitant]
  14. VITAMIN D [Concomitant]
  15. VITAMIN B12 [Concomitant]

REACTIONS (7)
  - HEART RATE IRREGULAR [None]
  - LIMB INJURY [None]
  - FACIAL PAIN [None]
  - HEADACHE [None]
  - PAIN IN EXTREMITY [None]
  - CHEST PAIN [None]
  - ARTHRALGIA [None]
